FAERS Safety Report 22142956 (Version 1)
Quarter: 2023Q1

REPORT INFORMATION
  Report Type: Spontaneous
  Country: NO (occurrence: NO)
  Receive Date: 20230327
  Receipt Date: 20230327
  Transmission Date: 20230418
  Serious: Yes (Other)
  Sender: FDA-Public Use
  Company Number: NO-CURRAX PHARMACEUTICALS LLC-NO-2023CUR001129

PATIENT
  Age: 61 Year
  Sex: Male
  Weight: 115 kg

DRUGS (1)
  1. BUPROPION HYDROCHLORIDE\NALTREXONE HYDROCHLORIDE [Suspect]
     Active Substance: BUPROPION HYDROCHLORIDE\NALTREXONE HYDROCHLORIDE
     Indication: Overweight
     Dosage: STRENGTH: 8/90 MG, 2 TABLETS TWICE DAILY
     Route: 065
     Dates: start: 20220610, end: 20230202

REACTIONS (5)
  - Erectile dysfunction [Recovered/Resolved]
  - Increased upper airway secretion [Recovered/Resolved]
  - Poor quality sleep [Recovered/Resolved]
  - Pollakiuria [Recovered/Resolved]
  - Dyspepsia [Recovered/Resolved]

NARRATIVE: CASE EVENT DATE: 20221101
